FAERS Safety Report 10810984 (Version 1)
Quarter: 2015Q1

REPORT INFORMATION
  Report Type: Report from Study
  Country: US (occurrence: US)
  Receive Date: 20150217
  Receipt Date: 20150217
  Transmission Date: 20150721
  Serious: No
  Sender: FDA-Public Use
  Company Number: US-ABBVIE-14K-163-1270309-00

PATIENT
  Sex: Female

DRUGS (21)
  1. CLIDINIUM [Concomitant]
     Active Substance: CLIDINIUM
     Indication: CROHN^S DISEASE
  2. CLIDINIUM [Concomitant]
     Active Substance: CLIDINIUM
     Indication: COLITIS
  3. ASPIRIN. [Concomitant]
     Active Substance: ASPIRIN
     Indication: CARDIAC DISORDER
  4. PROAIR HFA [Concomitant]
     Active Substance: ALBUTEROL SULFATE
     Indication: ASTHMA
     Dosage: EVERY FOUR TO SIX HOURS
  5. FUROSEMIDE. [Concomitant]
     Active Substance: FUROSEMIDE
     Indication: FLUID RETENTION
  6. CRESTOR [Concomitant]
     Active Substance: ROSUVASTATIN CALCIUM
     Indication: BLOOD CHOLESTEROL
  7. CHLORDIAZEPOXIDE [Concomitant]
     Active Substance: CHLORDIAZEPOXIDE
     Indication: CROHN^S DISEASE
  8. PREDNISONE. [Concomitant]
     Active Substance: PREDNISONE
     Indication: DIARRHOEA
  9. MELOXICAM. [Concomitant]
     Active Substance: MELOXICAM
     Indication: COLITIS
  10. ADVAIR HFA [Concomitant]
     Active Substance: FLUTICASONE PROPIONATE\SALMETEROL XINAFOATE
     Indication: ASTHMA
     Dosage: 250/500
  11. HUMIRA [Suspect]
     Active Substance: ADALIMUMAB
     Indication: CROHN^S DISEASE
     Dates: start: 20140724, end: 20140724
  12. CHLORDIAZEPOXIDE [Concomitant]
     Active Substance: CHLORDIAZEPOXIDE
     Indication: COLITIS
  13. HUMIRA [Suspect]
     Active Substance: ADALIMUMAB
  14. ATROPINE [Concomitant]
     Active Substance: ATROPINE
     Indication: DIARRHOEA
  15. RANITIDINE [Concomitant]
     Active Substance: RANITIDINE\RANITIDINE HYDROCHLORIDE
     Indication: GASTROOESOPHAGEAL REFLUX DISEASE
  16. TUMS EXTRA STRENGTH [Concomitant]
     Indication: GASTRIC DISORDER
     Dosage: EVERY MORNING
  17. ALBUTEROL. [Concomitant]
     Active Substance: ALBUTEROL
     Indication: ASTHMA
  18. RALOXIFENE HCL [Concomitant]
     Indication: OSTEOPOROSIS
  19. DIPHENOXYLATE [Concomitant]
     Active Substance: DIPHENOXYLATE
     Indication: DIARRHOEA
  20. PREDNISONE. [Concomitant]
     Active Substance: PREDNISONE
     Dosage: TAPER DOSE
  21. OMEPRAZOLE. [Concomitant]
     Active Substance: OMEPRAZOLE
     Indication: GASTROOESOPHAGEAL REFLUX DISEASE
     Dosage: EVERY MORNING

REACTIONS (6)
  - Productive cough [Unknown]
  - Headache [Not Recovered/Not Resolved]
  - Vomiting [Unknown]
  - Sputum discoloured [Unknown]
  - Nausea [Unknown]
  - Nasal congestion [Unknown]

NARRATIVE: CASE EVENT DATE: 2014
